FAERS Safety Report 20496541 (Version 1)
Quarter: 2022Q1

REPORT INFORMATION
  Report Type: Report from Study
  Country: US (occurrence: US)
  Receive Date: 20220221
  Receipt Date: 20220221
  Transmission Date: 20220423
  Serious: Yes (Hospitalization, Other)
  Sender: FDA-Public Use
  Company Number: US-UCBSA-2022007045

PATIENT
  Sex: Female

DRUGS (1)
  1. LACOSAMIDE [Suspect]
     Active Substance: LACOSAMIDE
     Indication: Seizure
     Dosage: 100 MILLIGRAM, 3X/DAY (TID)

REACTIONS (3)
  - Gastric infection [Not Recovered/Not Resolved]
  - Abscess drainage [Not Recovered/Not Resolved]
  - Surgery [Not Recovered/Not Resolved]
